FAERS Safety Report 9690993 (Version 1)
Quarter: 2013Q4

REPORT INFORMATION
  Report Type: Spontaneous
  Country: US (occurrence: None)
  Receive Date: 20131114
  Receipt Date: 20131114
  Transmission Date: 20140711
  Serious: Yes (Death)
  Sender: FDA-Public Use
  Company Number: None

PATIENT
  Age: 62 Year
  Sex: Male

DRUGS (2)
  1. ZYPREXA [Suspect]
     Indication: AGITATION
     Dosage: 12.5MG QHS, 7.5MG QAM, 2.5 PRN
     Route: 048
     Dates: start: 20110411, end: 20110906
  2. ZYPREXA [Suspect]
     Indication: MENTAL DISORDER
     Dosage: 12.5MG QHS, 7.5MG QAM, 2.5 PRN
     Route: 048
     Dates: start: 20110411, end: 20110906

REACTIONS (2)
  - Sepsis [None]
  - Pneumonia [None]
